FAERS Safety Report 11148166 (Version 2)
Quarter: 2015Q3

REPORT INFORMATION
  Report Type: Spontaneous
  Country: DE (occurrence: DE)
  Receive Date: 20150529
  Receipt Date: 20150708
  Transmission Date: 20151125
  Serious: Yes (Hospitalization)
  Sender: FDA-Public Use
  Company Number: DE-AMGEN-DEUSP2015051840

PATIENT
  Age: 60 Year
  Sex: Female
  Weight: 43 kg

DRUGS (7)
  1. FOSAPREPITANT [Concomitant]
     Active Substance: FOSAPREPITANT
     Indication: BREAST CANCER
     Dosage: 150 MG, 3 WEEKLY
     Route: 042
     Dates: start: 20150424, end: 20150626
  2. DEXAMETHASONE. [Concomitant]
     Active Substance: DEXAMETHASONE
     Indication: BREAST CANCER
     Dosage: 16 MG, 3 WEEKLY
     Route: 042
     Dates: start: 20150424, end: 20150626
  3. NEULASTA [Suspect]
     Active Substance: PEGFILGRASTIM
     Dosage: UNK
     Route: 065
  4. NEULASTA [Suspect]
     Active Substance: PEGFILGRASTIM
     Indication: PRODUCT USED FOR UNKNOWN INDICATION
     Dosage: 6 MG, 3 WEEKS
     Route: 058
     Dates: start: 20150425, end: 20150626
  5. CYCLOPHOSPHAMIDE. [Suspect]
     Active Substance: CYCLOPHOSPHAMIDE
     Indication: BREAST CANCER
     Dosage: 804 MG, 3 WEEKLY
     Route: 042
     Dates: start: 20150424, end: 20150626
  6. ONDASETRON                         /00955301/ [Concomitant]
     Indication: BREAST CANCER
     Dosage: 8 MG,  WEEKLY
     Route: 042
     Dates: start: 20150424, end: 20150626
  7. EPIRUBICIN [Concomitant]
     Active Substance: EPIRUBICIN
     Indication: BREAST CANCER
     Dosage: 121 MG, 3 WEEKLY
     Route: 042
     Dates: start: 20150424, end: 20150626

REACTIONS (2)
  - Neutropenia [Unknown]
  - Therapeutic response delayed [Recovered/Resolved]

NARRATIVE: CASE EVENT DATE: 2015
